FAERS Safety Report 12487506 (Version 1)
Quarter: 2016Q2

REPORT INFORMATION
  Report Type: Spontaneous
  Country: DK (occurrence: DK)
  Receive Date: 20160622
  Receipt Date: 20160622
  Transmission Date: 20160815
  Serious: Yes (Hospitalization)
  Sender: FDA-Public Use
  Company Number: DK-ACCORD-041755

PATIENT
  Age: 15 Year
  Sex: Male

DRUGS (8)
  1. PREDNISOLON DAK [Suspect]
     Active Substance: PREDNISOLONE
     Indication: JUVENILE IDIOPATHIC ARTHRITIS
     Dosage: ON DISCONTINUATION: 25 MG FOR 4 DAYS, 12.5 MG FOR 4 DAYS, 6.25 MG FOR 4 DAYS
     Route: 048
     Dates: start: 20120925, end: 20131016
  2. HUMIRA [Suspect]
     Active Substance: ADALIMUMAB
     Indication: JUVENILE IDIOPATHIC ARTHRITIS
     Route: 058
     Dates: start: 20130214, end: 20130812
  3. ENBREL [Suspect]
     Active Substance: ETANERCEPT
     Indication: JUVENILE IDIOPATHIC ARTHRITIS
     Route: 058
     Dates: start: 20121207, end: 20130214
  4. FOLINSYRE [Concomitant]
     Dates: start: 20121109, end: 20130313
  5. BONYL [Suspect]
     Active Substance: NAPROXEN
     Indication: JUVENILE IDIOPATHIC ARTHRITIS
     Route: 048
     Dates: start: 20121010, end: 20130812
  6. KENALOG [Suspect]
     Active Substance: TRIAMCINOLONE ACETONIDE
     Indication: JUVENILE IDIOPATHIC ARTHRITIS
     Dosage: PROVIDED IN PART MANY TIMES
     Route: 014
     Dates: start: 20120925
  7. METHOTREXATE [Suspect]
     Active Substance: METHOTREXATE
     Indication: JUVENILE IDIOPATHIC ARTHRITIS
     Dosage: DOSE: 12.5-15 MG
     Route: 058
     Dates: start: 20121109, end: 20130313
  8. GRANISETRON [Concomitant]
     Active Substance: GRANISETRON
     Indication: NAUSEA
     Dates: start: 20121109, end: 20130313

REACTIONS (8)
  - Oedema peripheral [Recovered/Resolved]
  - Synovitis [Recovered/Resolved]
  - Bone atrophy [Not Recovered/Not Resolved]
  - Bone disorder [Not Recovered/Not Resolved]
  - Arthritis [Recovered/Resolved]
  - Gait disturbance [Recovering/Resolving]
  - Cartilage atrophy [Not Recovered/Not Resolved]
  - Knee operation [Recovering/Resolving]

NARRATIVE: CASE EVENT DATE: 2012
